FAERS Safety Report 5679728-1 (Version None)
Quarter: 2008Q1

REPORT INFORMATION
  Report Type: 
  Country: None (occurrence: None)
  Receive Date: 20080324
  Receipt Date: 20080313
  Transmission Date: 20080703
  Serious: Yes (Death, Hospitalization)
  Sender: FDA-Public Use
  Company Number: 2007-03792

PATIENT
  Age: 65 Year
  Sex: Male
  Weight: 94.4 kg

DRUGS (20)
  1. VELCADE [Suspect]
     Indication: MULTIPLE MYELOMA
     Dosage: 2.3 MG, INTRAVENOUS
     Route: 042
     Dates: start: 20070919, end: 20071109
  2. REVLIMID [Suspect]
     Indication: MULTIPLE MYELOMA
     Dosage: 15 MG, ORAL
     Route: 048
     Dates: start: 20070919, end: 20071110
  3. DEXAMETHASONE TAB [Suspect]
     Indication: MULTIPLE MYELOMA
     Dosage: 20.00 MG, ORAL
     Route: 048
     Dates: start: 20070919, end: 20071110
  4. LOPRESSOR [Concomitant]
  5. MEPRON [Concomitant]
  6. NORVASC [Concomitant]
  7. OMEPRAZOLE [Concomitant]
  8. OXYCODONE HCL [Concomitant]
  9. THYROID TAB [Concomitant]
  10. RITALIN [Concomitant]
  11. LOMOTIL [Concomitant]
  12. LASIX [Concomitant]
  13. HYDROCHLOROTHIAZIDE [Concomitant]
  14. FOLIC ACID [Concomitant]
  15. FLUCONAZOLE [Concomitant]
  16. FAMVIR [Concomitant]
  17. CELEXA [Concomitant]
  18. AREDIA [Concomitant]
  19. ALLOPURINOL [Concomitant]
  20. ACTIGALL [Concomitant]

REACTIONS (3)
  - BACTERIAL INFECTION [None]
  - BRONCHOPNEUMONIA [None]
  - HAEMOSIDEROSIS [None]
